FAERS Safety Report 18405764 (Version 2)
Quarter: 2020Q4

REPORT INFORMATION
  Report Type: Spontaneous
  Country: IN (occurrence: IN)
  Receive Date: 20201020
  Receipt Date: 20201027
  Transmission Date: 20210114
  Serious: Yes (Hospitalization, Other)
  Sender: FDA-Public Use
  Company Number: IN-SA-2020SA288125

PATIENT

DRUGS (4)
  1. METFORMIN [Concomitant]
     Active Substance: METFORMIN HYDROCHLORIDE
     Indication: TYPE 2 DIABETES MELLITUS
     Dosage: UNK
  2. LEFLUNOMIDE. [Suspect]
     Active Substance: LEFLUNOMIDE
     Indication: ARTHRITIS
     Dosage: 20 MG, QD
  3. TELMISARTAN. [Concomitant]
     Active Substance: TELMISARTAN
     Indication: ESSENTIAL HYPERTENSION
     Dosage: UNK
  4. METHOTREXATE. [Concomitant]
     Active Substance: METHOTREXATE
     Indication: RHEUMATOID ARTHRITIS
     Dosage: 15 MG, QW

REACTIONS (31)
  - Lymphadenopathy [Recovering/Resolving]
  - Oedema peripheral [Recovering/Resolving]
  - Breath sounds abnormal [Recovering/Resolving]
  - Erythema [Recovering/Resolving]
  - Macule [Recovering/Resolving]
  - Lymphocyte morphology abnormal [Recovering/Resolving]
  - Rash [Recovering/Resolving]
  - Rash pruritic [Recovering/Resolving]
  - Oral candidiasis [Recovering/Resolving]
  - Epidermal necrosis [Recovering/Resolving]
  - Thyroid function test abnormal [Unknown]
  - Liver function test abnormal [Recovering/Resolving]
  - Face oedema [Recovering/Resolving]
  - Pyrexia [Recovering/Resolving]
  - Mouth ulceration [Recovering/Resolving]
  - Normochromic normocytic anaemia [Recovering/Resolving]
  - Procalcitonin increased [Recovering/Resolving]
  - Rash erythematous [Recovering/Resolving]
  - Drug reaction with eosinophilia and systemic symptoms [Recovering/Resolving]
  - Skin exfoliation [Recovering/Resolving]
  - Eosinophilia [Recovering/Resolving]
  - Dermatitis exfoliative [Recovering/Resolving]
  - Blister [Recovering/Resolving]
  - Rales [Recovering/Resolving]
  - Pneumonia [Recovering/Resolving]
  - Pleural effusion [Recovering/Resolving]
  - Hepatitis [Recovering/Resolving]
  - Hepatic function abnormal [Recovering/Resolving]
  - Pruritus [Recovering/Resolving]
  - Pallor [Recovering/Resolving]
  - Blood albumin decreased [Recovering/Resolving]
